FAERS Safety Report 9835349 (Version 3)
Quarter: 2014Q1

REPORT INFORMATION
  Report Type: Spontaneous
  Country: JP (occurrence: JP)
  Receive Date: 20140122
  Receipt Date: 20140207
  Transmission Date: 20141002
  Serious: Yes (Hospitalization, Other)
  Sender: FDA-Public Use
  Company Number: JP-PFIZER INC-2013354206

PATIENT
  Age: 69 Year
  Sex: Female
  Weight: 55.1 kg

DRUGS (6)
  1. INLYTA [Suspect]
     Indication: METASTATIC RENAL CELL CARCINOMA
     Dosage: 5 MG, 2X/DAY
     Route: 048
     Dates: start: 20130415, end: 20130510
  2. INLYTA [Suspect]
     Dosage: 6 MG, 1X/DAY
     Route: 048
     Dates: start: 20130527, end: 20130613
  3. INLYTA [Suspect]
     Dosage: 4 MG, 1X/DAY
     Route: 048
     Dates: start: 20130627
  4. SUTENT [Suspect]
     Indication: METASTATIC RENAL CELL CARCINOMA
     Dosage: 50 MG, 1X/DAY
     Route: 048
     Dates: start: 20130304, end: 20130319
  5. TANATRIL [Concomitant]
     Dosage: 5 MG, 1X/DAY
     Dates: end: 20130510
  6. RAMIAN [Concomitant]
     Dosage: 5 MG, 1X/DAY
     Dates: end: 20130510

REACTIONS (2)
  - Hyperthyroidism [Recovering/Resolving]
  - Thyroiditis [Unknown]
